FAERS Safety Report 7478354-1 (Version None)
Quarter: 2011Q2

REPORT INFORMATION
  Report Type: 
  Country: None (occurrence: None)
  Receive Date: 20110513
  Receipt Date: 20100701
  Transmission Date: 20111010
  Serious: Yes (Other)
  Sender: FDA-Public Use
  Company Number: US-PFIZER INC-2010083100

PATIENT
  Age: 43 Year
  Sex: Female
  Weight: 73 kg

DRUGS (14)
  1. CELEBREX [Suspect]
     Indication: OSTEOCHONDRITIS
  2. GLUCOSAMINE [Concomitant]
     Dosage: UNK
  3. MULTI-VITAMINS [Concomitant]
     Dosage: UNK
  4. CELEBREX [Suspect]
     Indication: INTERVERTEBRAL DISC DEGENERATION
     Dosage: 200 MG, 1X/DAY
     Route: 048
     Dates: start: 20100629
  5. CELEBREX [Suspect]
     Indication: SPINE MALFORMATION
  6. GUAIFENESIN [Concomitant]
     Dosage: UNK
  7. ALLEGRA D 24 HOUR [Concomitant]
     Indication: HYPERSENSITIVITY
     Dosage: UNK
     Route: 048
  8. CELEBREX [Suspect]
     Indication: COSTOCHONDRITIS
  9. CELEBREX [Suspect]
     Indication: FIBROMYALGIA
  10. CHONDROITIN [Concomitant]
     Dosage: UNK
  11. WOBENZYM N [Concomitant]
     Indication: INFLAMMATION
     Dosage: UNK
  12. CELEBREX [Suspect]
     Indication: INTERVERTEBRAL DISC INJURY
  13. CALCIUM [Concomitant]
     Dosage: UNK
  14. FLEXERIL [Concomitant]
     Indication: HYPOTONIA
     Dosage: 10 MG, 1X/DAY
     Route: 048

REACTIONS (1)
  - PHARYNGITIS [None]
